FAERS Safety Report 5469336-X (Version None)
Quarter: 2007Q3

REPORT INFORMATION
  Report Type: 
  Country: None (occurrence: None)
  Receive Date: 20070927
  Receipt Date: 20070919
  Transmission Date: 20080115
  Serious: Yes (Hospitalization)
  Sender: FDA-Public Use
  Company Number: FR-JNJFOC-20070904943

PATIENT
  Age: 17 Year
  Sex: Female

DRUGS (7)
  1. SPORANOX [Suspect]
     Indication: ASPERGILLOSIS
     Route: 048
  2. CREON [Concomitant]
     Route: 065
  3. URSOLVAN [Concomitant]
     Route: 065
  4. VITAMIN A, E, C [Concomitant]
     Route: 065
  5. UVESTEROL [Concomitant]
     Route: 065
  6. PULMOZYME [Concomitant]
     Route: 065
  7. ANTIOBIOTICS [Concomitant]
     Indication: PSEUDOMONAS INFECTION
     Route: 065

REACTIONS (4)
  - ELECTROCARDIOGRAM ABNORMAL [None]
  - HYPERTENSION [None]
  - HYPOKALAEMIA [None]
  - METABOLIC ALKALOSIS [None]
